FAERS Safety Report 5727475-X (Version None)
Quarter: 2008Q2

REPORT INFORMATION
  Report Type: 
  Country: None (occurrence: None)
  Receive Date: 20080505
  Receipt Date: 20080424
  Transmission Date: 20081010
  Serious: Yes (Hospitalization)
  Sender: FDA-Public Use
  Company Number: GB-JNJFOC-20080406615

PATIENT
  Age: 12 Year
  Sex: Female
  Weight: 46 kg

DRUGS (3)
  1. CHILDREN'S IBUPROFEN [Suspect]
     Indication: PYREXIA
     Route: 048
  2. PARACETAMOL [Concomitant]
     Indication: PYREXIA
     Route: 048
  3. CHLORPHENAMINE [Concomitant]
     Indication: PRURITUS
     Route: 048

REACTIONS (1)
  - RENAL FAILURE ACUTE [None]
